FAERS Safety Report 17588919 (Version 1)
Quarter: 2020Q1

REPORT INFORMATION
  Report Type: Spontaneous
  Country: US (occurrence: US)
  Receive Date: 20200327
  Receipt Date: 20200327
  Transmission Date: 20200409
  Serious: Yes (Other)
  Sender: FDA-Public Use
  Company Number: US-ALEMBIC PHARMACUETICALS LIMITED-2020SCAL000132

PATIENT

DRUGS (11)
  1. CLOZAPINE. [Interacting]
     Active Substance: CLOZAPINE
     Indication: SCHIZOAFFECTIVE DISORDER DEPRESSIVE TYPE
     Dosage: UNK
     Route: 048
  2. BUPROPION HYDROCHLORIDE;NALTREXONE HYDROCHLORIDE [Interacting]
     Active Substance: BUPROPION HYDROCHLORIDE\NALTREXONE HYDROCHLORIDE
     Indication: WEIGHT DECREASED
     Dosage: UNK
     Route: 048
  3. LURASIDONE [Suspect]
     Active Substance: LURASIDONE
     Indication: SCHIZOAFFECTIVE DISORDER DEPRESSIVE TYPE
     Dosage: UNK
     Route: 048
  4. ATORVASTATIN [Concomitant]
     Active Substance: ATORVASTATIN
     Indication: PRODUCT USED FOR UNKNOWN INDICATION
     Dosage: UNK
     Route: 065
  5. LEVOTHYROXINE. [Suspect]
     Active Substance: LEVOTHYROXINE
     Indication: PRODUCT USED FOR UNKNOWN INDICATION
     Dosage: UNKNOWN
     Route: 065
  6. VENLAFAXINE [Suspect]
     Active Substance: VENLAFAXINE HYDROCHLORIDE
     Indication: SCHIZOAFFECTIVE DISORDER DEPRESSIVE TYPE
     Dosage: UNKNOWN
     Route: 048
  7. CLOZAPINE. [Interacting]
     Active Substance: CLOZAPINE
     Dosage: IN THE MORNING [THE CLOZAPINE DOSE HAD NOT BEEN ADJUSTED IN 11 MONTHS ]
     Route: 048
  8. ACETYLSALICYLIC ACID [Concomitant]
     Active Substance: ASPIRIN
     Indication: PRODUCT USED FOR UNKNOWN INDICATION
     Dosage: UNKNOWN
     Route: 065
  9. CLOZAPINE. [Interacting]
     Active Substance: CLOZAPINE
     Dosage: IN THE EVENING [THE CLOZAPINE DOSE HAD NOT BEEN ADJUSTED IN 11 MONTHS ]
     Route: 048
  10. PROPRANOLOL [Concomitant]
     Active Substance: PROPRANOLOL HYDROCHLORIDE
     Indication: PRODUCT USED FOR UNKNOWN INDICATION
     Dosage: UNK
     Route: 065
  11. OMEPRAZOLE. [Concomitant]
     Active Substance: OMEPRAZOLE
     Indication: PRODUCT USED FOR UNKNOWN INDICATION
     Dosage: UNKNOWN
     Route: 065

REACTIONS (5)
  - Metabolic disorder [Recovered/Resolved]
  - Abnormal weight gain [Recovering/Resolving]
  - Bundle branch block right [Unknown]
  - Generalised tonic-clonic seizure [Recovered/Resolved]
  - Drug interaction [Recovered/Resolved]
